FAERS Safety Report 4636541-1 (Version None)
Quarter: 2005Q2

REPORT INFORMATION
  Report Type: 
  Country: None (occurrence: None)
  Receive Date: 20050415
  Receipt Date: 20050406
  Transmission Date: 20051028
  Serious: Yes (Life-Threatening)
  Sender: FDA-Public Use
  Company Number: 2005-0096

PATIENT
  Age: 73 Year
  Sex: Female

DRUGS (4)
  1. RANIPLEX [Suspect]
     Dosage: 1AMP PER DAY
     Route: 042
     Dates: start: 20041209, end: 20041209
  2. POLARAMINE [Suspect]
     Dosage: 1AMP PER DAY
     Route: 042
     Dates: start: 20041209, end: 20041209
  3. SOLU-MEDROL [Concomitant]
     Dosage: 20MGML SINGLE DOSE
     Route: 042
     Dates: start: 20041209, end: 20041209
  4. CHEMOTHERAPY [Concomitant]
     Route: 065

REACTIONS (7)
  - ANAPHYLACTIC SHOCK [None]
  - CIRCULATORY COLLAPSE [None]
  - DRUG HYPERSENSITIVITY [None]
  - HEADACHE [None]
  - HOT FLUSH [None]
  - LOSS OF CONSCIOUSNESS [None]
  - MALAISE [None]
